FAERS Safety Report 5309050-4 (Version None)
Quarter: 2007Q2

REPORT INFORMATION
  Report Type: 
  Country: None (occurrence: None)
  Receive Date: 20070420
  Receipt Date: 20070404
  Transmission Date: 20071010
  Serious: Yes (Other)
  Sender: FDA-Public Use
  Company Number: DSA_29750_2007

PATIENT
  Age: 83 Year
  Sex: Male

DRUGS (1)
  1. MONO-TILDIEM (MONO-TILDIEM) (NOT SPECIFIED) [Suspect]
     Dosage: ORAL
     Route: 048
     Dates: start: 20060401

REACTIONS (1)
  - AORTIC ANEURYSM [None]
